FAERS Safety Report 21228900 (Version 5)
Quarter: 2023Q2

REPORT INFORMATION
  Report Type: Spontaneous
  Country: US (occurrence: US)
  Receive Date: 20220818
  Receipt Date: 20230424
  Transmission Date: 20230721
  Serious: Yes (Other)
  Sender: FDA-Public Use
  Company Number: US-BAYER-2022A112213

PATIENT
  Age: 34 Year
  Sex: Male

DRUGS (8)
  1. JIVI [Suspect]
     Active Substance: DAMOCTOCOG ALFA PEGOL
     Dosage: 5100 IU, BIW
     Route: 042
  2. JIVI [Suspect]
     Active Substance: DAMOCTOCOG ALFA PEGOL
     Dosage: 5100 UNK, PRN
     Route: 042
  3. JIVI [Suspect]
     Active Substance: DAMOCTOCOG ALFA PEGOL
     Dosage: 2 DF FOR LEFT ANKLE BLEED TREATMENT
  4. JIVI [Suspect]
     Active Substance: DAMOCTOCOG ALFA PEGOL
     Dosage: 2 DF FOR RIGHT ELBOW BLEED
  5. JIVI [Suspect]
     Active Substance: DAMOCTOCOG ALFA PEGOL
     Dosage: 2 DF FOR RIGHT JAW AND RIGHT ANKLE BLEED
     Dates: start: 202301, end: 202301
  6. JIVI [Suspect]
     Active Substance: DAMOCTOCOG ALFA PEGOL
     Dosage: UNK, TO TREAT RIGHT ANKLE BLEED
     Route: 042
     Dates: start: 20230222, end: 20230224
  7. JIVI [Suspect]
     Active Substance: DAMOCTOCOG ALFA PEGOL
     Dosage: UNK, TO TREAT LEFT ANKLE BLEED
     Route: 042
     Dates: start: 20230304, end: 20230304
  8. JIVI [Suspect]
     Active Substance: DAMOCTOCOG ALFA PEGOL
     Dosage: PATIENT INFUSED 2 EXTRA DOSES  FOR LEFT ELBOW BLEED
     Route: 042
     Dates: start: 20230413, end: 20230413

REACTIONS (9)
  - Haemarthrosis [None]
  - Haemarthrosis [None]
  - Haemarthrosis [Recovered/Resolved]
  - Haemorrhage [Recovered/Resolved]
  - Haemarthrosis [Recovered/Resolved]
  - Haemarthrosis [Recovered/Resolved]
  - Haemarthrosis [Recovered/Resolved]
  - Haemarthrosis [Recovered/Resolved]
  - Product dose omission in error [None]

NARRATIVE: CASE EVENT DATE: 20220710
